FAERS Safety Report 24977060 (Version 1)
Quarter: 2025Q1

REPORT INFORMATION
  Report Type: Spontaneous
  Country: CA (occurrence: CA)
  Receive Date: 20250217
  Receipt Date: 20250217
  Transmission Date: 20250409
  Serious: Yes (Hospitalization, Other)
  Sender: CSL BEHRING
  Company Number: CA-BEH-2024186756

PATIENT
  Age: 17 Year
  Sex: Female

DRUGS (2)
  1. PRIVIGEN [Suspect]
     Active Substance: HUMAN IMMUNOGLOBULIN G
     Indication: Guillain-Barre syndrome
     Route: 042
     Dates: start: 20241126, end: 20241126
  2. PRIVIGEN [Suspect]
     Active Substance: HUMAN IMMUNOGLOBULIN G
     Route: 042
     Dates: start: 20241126, end: 20241126

REACTIONS (9)
  - Hypertension [Unknown]
  - Pyrexia [Unknown]
  - Chills [Unknown]
  - Tachycardia [Unknown]
  - Nausea [Unknown]
  - Headache [Unknown]
  - Product contamination microbial [Unknown]
  - Staphylococcus test positive [Unknown]
  - Gram stain positive [Unknown]

NARRATIVE: CASE EVENT DATE: 20241126
